FAERS Safety Report 6521492-8 (Version None)
Quarter: 2009Q4

REPORT INFORMATION
  Report Type: 
  Country: None (occurrence: None)
  Receive Date: 20091214
  Receipt Date: 20090622
  Transmission Date: 20100525
  Serious: Yes (Other)
  Sender: FDA-Public Use
  Company Number: 641375

PATIENT
  Age: 59 Year
  Sex: Male
  Weight: 72.6 kg

DRUGS (3)
  1. PEGASYS [Suspect]
     Indication: HEPATITIS C
     Dosage: 180 UG 1 PER 1 WEEK SUBCUTANEOUS
     Route: 058
     Dates: start: 20081128
  2. RIBAVIRIN [Suspect]
     Indication: HEPATITIS C
     Dosage: 1200 MG DAILY ORAL
     Route: 048
     Dates: start: 20081128
  3. AMBIEN [Concomitant]

REACTIONS (3)
  - EAR INFECTION [None]
  - HEARING IMPAIRED [None]
  - HYPERACUSIS [None]
